FAERS Safety Report 6918662-3 (Version None)
Quarter: 2010Q3

REPORT INFORMATION
  Report Type: 
  Country: None (occurrence: None)
  Receive Date: 20100811
  Receipt Date: 20100730
  Transmission Date: 20110219
  Serious: Yes (Other)
  Sender: FDA-Public Use
  Company Number: MX-PFIZER INC-2010092526

PATIENT

DRUGS (2)
  1. LOPID [Suspect]
     Indication: HYPERTRIGLYCERIDAEMIA
     Dosage: 600 MG, 1X/DAY
     Route: 064
     Dates: start: 20100605, end: 20100625
  2. PHARMATON COMPLEX [Suspect]
     Dosage: UNK
     Route: 064
     Dates: start: 20100605, end: 20100625

REACTIONS (2)
  - DRUG EXPOSURE DURING PREGNANCY [None]
  - PREMATURE SEPARATION OF PLACENTA [None]
